FAERS Safety Report 10183245 (Version 2)
Quarter: 2014Q3

REPORT INFORMATION
  Report Type: Report from Study
  Country: FR (occurrence: FR)
  Receive Date: 20140520
  Receipt Date: 20140701
  Transmission Date: 20150326
  Serious: Yes (Other)
  Sender: FDA-Public Use
  Company Number: FR-JNJFOC-20140508255

PATIENT
  Sex: Male
  Weight: 67 kg

DRUGS (7)
  1. SIMEPREVIR [Suspect]
     Active Substance: SIMEPREVIR
     Indication: CHRONIC HEPATITIS C
     Dates: start: 20140409, end: 20140528
  2. RIBAVIRIN. [Suspect]
     Active Substance: RIBAVIRIN
     Indication: CHRONIC HEPATITIS C
     Dates: start: 20140409
  3. PREVISCAN (FLUINDIONE) [Concomitant]
     Active Substance: FLUINDIONE
     Dates: start: 1990
  4. PREVISCAN (FLUINDIONE) [Concomitant]
     Active Substance: FLUINDIONE
     Dates: start: 1990
  5. PEGYLATED INTERFERON ALPHA NOS [Suspect]
     Active Substance: PEGINTERFERON ALFA-2A OR PEGINTERFERON ALFA-2B
     Indication: CHRONIC HEPATITIS C
     Dates: start: 20140409
  6. PREVISCAN (FLUINDIONE) [Concomitant]
     Active Substance: FLUINDIONE
     Dates: start: 1990
  7. ANTIVITAMIN K [Concomitant]
     Active Substance: WARFARIN
     Indication: PROTEIN S DEFICIENCY

REACTIONS (3)
  - Neutrophil count decreased [Unknown]
  - Blood bilirubin increased [Unknown]
  - Treatment failure [Unknown]
